FAERS Safety Report 21145680 (Version 1)
Quarter: 2022Q3

REPORT INFORMATION
  Report Type: Spontaneous
  Country: US (occurrence: US)
  Receive Date: 20220729
  Receipt Date: 20220729
  Transmission Date: 20221027
  Serious: No
  Sender: FDA-Public Use
  Company Number: US-009507513-2207USA006736

PATIENT

DRUGS (3)
  1. CUBICIN [Suspect]
     Active Substance: DAPTOMYCIN
     Indication: Bacteraemia
     Dosage: 1100 MILLIGRAM DAILY ON MONDAY
     Route: 042
  2. CUBICIN [Suspect]
     Active Substance: DAPTOMYCIN
     Dosage: 1100 MILLIGRAM DAILY ON WEDNESDAY
     Route: 042
  3. CUBICIN [Suspect]
     Active Substance: DAPTOMYCIN
     Dosage: 1700 MILLIGRAM FRIDAY
     Route: 042

REACTIONS (3)
  - Product use issue [Unknown]
  - Product use issue [Unknown]
  - No adverse event [Unknown]
